FAERS Safety Report 7058586-7 (Version None)
Quarter: 2010Q4

REPORT INFORMATION
  Report Type: 
  Country: None (occurrence: None)
  Receive Date: 20101022
  Receipt Date: 20101020
  Transmission Date: 20110411
  Serious: Yes (Life-Threatening, Hospitalization)
  Sender: FDA-Public Use
  Company Number: A0887442A

PATIENT
  Sex: Female
  Weight: 55.5 kg

DRUGS (8)
  1. LAPATINIB [Suspect]
     Indication: BREAST CANCER METASTATIC
     Dosage: 1250MG PER DAY
     Route: 048
     Dates: start: 20100930
  2. DOCETAXEL [Suspect]
     Indication: BREAST CANCER METASTATIC
     Dosage: 75MGM2 EVERY 3 WEEKS
     Route: 042
     Dates: start: 20100930
  3. IBUPROFEN [Concomitant]
     Indication: PAIN
     Dates: start: 20100101
  4. METFORMIN [Concomitant]
     Indication: DIABETES MELLITUS
     Dates: start: 20000101
  5. LORAZEPAM [Concomitant]
     Indication: PAIN
     Dates: start: 20100101
  6. HYDROMORPHONE HCL [Concomitant]
     Indication: PAIN
     Dates: start: 20100101
  7. PROCHLORPEMAZINE [Concomitant]
     Indication: PROPHYLAXIS
     Dates: start: 20100101
  8. ASPIRIN [Concomitant]
     Indication: PROPHYLAXIS
     Dates: start: 20020101

REACTIONS (3)
  - DIARRHOEA [None]
  - FEBRILE NEUTROPENIA [None]
  - HYPOKALAEMIA [None]
